FAERS Safety Report 9125467 (Version 2)
Quarter: 2013Q2

REPORT INFORMATION
  Report Type: Spontaneous
  Country: US (occurrence: US)
  Receive Date: 20130117
  Receipt Date: 20130423
  Transmission Date: 20140414
  Serious: No
  Sender: FDA-Public Use
  Company Number: US-BRISTOL-MYERS SQUIBB COMPANY-17193491

PATIENT
  Age: 72 Year
  Sex: Male
  Weight: 76.19 kg

DRUGS (1)
  1. YERVOY [Suspect]
     Indication: METASTATIC MALIGNANT MELANOMA
     Dosage: 2ND INF ON 14NOV12?NO OF INF:4
     Route: 042
     Dates: start: 20121030

REACTIONS (6)
  - Diarrhoea [Recovered/Resolved]
  - Pruritus [Recovering/Resolving]
  - Acne [Recovering/Resolving]
  - Blood testosterone decreased [Unknown]
  - Fatigue [Unknown]
  - Rash [Unknown]
